FAERS Safety Report 24388106 (Version 3)
Quarter: 2024Q4

REPORT INFORMATION
  Report Type: Report from Study
  Country: AT (occurrence: AT)
  Receive Date: 20241002
  Receipt Date: 20241127
  Transmission Date: 20250115
  Serious: Yes (Life-Threatening, Hospitalization, Other)
  Sender: ALNYLAM PHARMACEUTICALS
  Company Number: AT-ALNYLAM PHARMACEUTICALS, INC.-ALN-2024-005378

PATIENT

DRUGS (2)
  1. AMVUTTRA [Suspect]
     Active Substance: VUTRISIRAN
     Indication: Hereditary ATTR amyloid cardiomyopathy
     Dosage: 25 MILLIGRAM, Q3M
     Route: 065
     Dates: start: 20240912, end: 20240912
  2. VITAMIN A [Concomitant]
     Active Substance: VITAMIN A
     Indication: Supplementation therapy
     Dosage: 2500 INTERNATIONAL UNIT, QD
     Route: 048
     Dates: start: 20240912

REACTIONS (6)
  - Gastrointestinal disorder [Unknown]
  - Intestinal perforation [Unknown]
  - Blood pressure increased [Unknown]
  - Heart rate increased [Unknown]
  - Headache [Unknown]
  - Limb discomfort [Recovered/Resolved]

NARRATIVE: CASE EVENT DATE: 20240913
